FAERS Safety Report 19985099 (Version 2)
Quarter: 2021Q4

REPORT INFORMATION
  Report Type: Spontaneous
  Country: JP (occurrence: JP)
  Receive Date: 20211021
  Receipt Date: 20211111
  Transmission Date: 20220303
  Serious: Yes (Hospitalization, Other)
  Sender: FDA-Public Use
  Company Number: JP-TEIJIN-202102783_FE_P_1

PATIENT
  Age: 49 Year
  Sex: Male

DRUGS (2)
  1. FEBUXOSTAT [Interacting]
     Active Substance: FEBUXOSTAT
     Indication: Gout
     Dosage: UNK
     Route: 048
     Dates: start: 20200907, end: 20201020
  2. AZATHIOPRINE [Interacting]
     Active Substance: AZATHIOPRINE
     Indication: Colitis ulcerative
     Dosage: UNK
     Route: 048
     Dates: start: 2017, end: 20201020

REACTIONS (3)
  - Drug interaction [Unknown]
  - Myelosuppression [Unknown]
  - Anaemia [Unknown]

NARRATIVE: CASE EVENT DATE: 20201001
